FAERS Safety Report 10186233 (Version 1)
Quarter: 2014Q2

REPORT INFORMATION
  Report Type: Spontaneous
  Country: FR (occurrence: FR)
  Receive Date: 20140521
  Receipt Date: 20140521
  Transmission Date: 20141212
  Serious: Yes (Hospitalization)
  Sender: FDA-Public Use
  Company Number: FR-GLAXOSMITHKLINE-B0993708A

PATIENT
  Age: 83 Year
  Sex: Male

DRUGS (17)
  1. NIMBEX [Suspect]
     Indication: ANAESTHESIA
     Route: 042
     Dates: start: 20130906, end: 20130906
  2. ZINNAT [Suspect]
     Indication: PRODUCT USED FOR UNKNOWN INDICATION
     Route: 042
     Dates: start: 20130906, end: 20130906
  3. HEPARINE SODIUM [Suspect]
     Indication: EXTRACORPOREAL CIRCULATION
     Dosage: 22000IU PER DAY
     Route: 042
     Dates: start: 20130906, end: 20130906
  4. GABAPENTIN [Suspect]
     Indication: PRODUCT USED FOR UNKNOWN INDICATION
     Dosage: 600MG PER DAY
     Route: 048
     Dates: start: 20130906, end: 20130906
  5. SUFENTANIL [Suspect]
     Indication: ANAESTHESIA
     Route: 042
     Dates: start: 20130906, end: 20130906
  6. PROPOFOL [Suspect]
     Indication: ANAESTHESIA
     Route: 042
     Dates: start: 20130906, end: 20130906
  7. KETAMINE [Suspect]
     Indication: ANAESTHESIA
     Route: 042
     Dates: start: 20130906, end: 20130906
  8. ATARAX [Suspect]
     Indication: ANXIETY
     Dosage: 50MG TWICE PER DAY
     Route: 048
     Dates: start: 20130905, end: 20130906
  9. PROTAMINE [Suspect]
     Indication: PRODUCT USED FOR UNKNOWN INDICATION
     Route: 042
     Dates: start: 20130906, end: 20130906
  10. EXACYL [Suspect]
     Indication: HAEMORRHAGE PROPHYLAXIS
     Route: 042
     Dates: start: 20130906, end: 20130906
  11. LASILIX [Concomitant]
     Route: 065
  12. COVERSYL [Concomitant]
     Route: 065
  13. AMLOR [Concomitant]
     Route: 065
  14. KARDEGIC [Concomitant]
     Route: 065
  15. CRESTOR [Concomitant]
     Route: 065
  16. NORADRENALINE [Concomitant]
     Indication: PRODUCT USED FOR UNKNOWN INDICATION
     Route: 065
     Dates: start: 20130906, end: 20130906
  17. EPHEDRINE [Concomitant]
     Indication: PRODUCT USED FOR UNKNOWN INDICATION
     Route: 065
     Dates: start: 20130906, end: 20130906

REACTIONS (1)
  - Post procedural haemorrhage [Recovered/Resolved]
